FAERS Safety Report 20632480 (Version 3)
Quarter: 2023Q1

REPORT INFORMATION
  Report Type: Report from Study
  Country: AU (occurrence: AU)
  Receive Date: 20220324
  Receipt Date: 20230214
  Transmission Date: 20230418
  Serious: Yes (Death, Other)
  Sender: FDA-Public Use
  Company Number: AU-NOVARTISPH-NVSC2022AU067310

PATIENT
  Sex: Female

DRUGS (1)
  1. KYMRIAH [Suspect]
     Active Substance: TISAGENLECLEUCEL
     Indication: Diffuse large B-cell lymphoma
     Dosage: UNK UNK, ONCE/SINGLE
     Route: 042
     Dates: start: 20220216, end: 20220216

REACTIONS (14)
  - Death [Fatal]
  - Renal failure [Unknown]
  - Haemorrhage [Unknown]
  - Sepsis [Unknown]
  - Loss of consciousness [Unknown]
  - Dysarthria [Unknown]
  - Ataxia [Unknown]
  - Incontinence [Unknown]
  - Perforation [Unknown]
  - Fall [Unknown]
  - Anal haemorrhage [Unknown]
  - Illness [Unknown]
  - Aphasia [Unknown]
  - Dyspnoea [Unknown]
